FAERS Safety Report 22068791 (Version 3)
Quarter: 2024Q2

REPORT INFORMATION
  Report Type: Spontaneous
  Country: US (occurrence: US)
  Receive Date: 20230307
  Receipt Date: 20240418
  Transmission Date: 20240716
  Serious: Yes (Death)
  Sender: FDA-Public Use
  Company Number: US-AMNEAL PHARMACEUTICALS-2022-AMRX-03224

PATIENT
  Age: 59 Year
  Sex: Male

DRUGS (3)
  1. RYTARY [Suspect]
     Active Substance: CARBIDOPA\LEVODOPA
     Indication: Product used for unknown indication
     Dosage: 2 CAPSULES(48.75-195 MG), 4 /DAY
     Route: 048
  2. RYTARY [Suspect]
     Active Substance: CARBIDOPA\LEVODOPA
     Dosage: 2 CAPSULES (48.75/195 MG) BY MOUTH AT 6AM, 9AM, 12PM, 3PM AND 8PM. TAKE 1 CAPSULE AS NEEDED AT 3 AM
     Route: 048
  3. RYTARY [Suspect]
     Active Substance: CARBIDOPA\LEVODOPA
     Dosage: 2 CAPSULES (48.75/195 MG) BY MOUTH AT 9AM, 12PM, 3PM AND 8PM. TAKE 1 CAPSULE AS NEEDED AT 3 AM
     Route: 048

REACTIONS (7)
  - Death [Fatal]
  - Hyperventilation [Unknown]
  - Food interaction [Unknown]
  - Therapeutic response shortened [Unknown]
  - Dizziness [Unknown]
  - Anxiety [Unknown]
  - Product use issue [Unknown]

NARRATIVE: CASE EVENT DATE: 20220902
